FAERS Safety Report 4401352-9 (Version None)
Quarter: 2004Q3

REPORT INFORMATION
  Report Type: 
  Country: None (occurrence: None)
  Receive Date: 20040907
  Receipt Date: 20040322
  Transmission Date: 20050211
  Serious: Yes (Other)
  Sender: FDA-Public Use
  Company Number: US-BRISTOL-MYERS SQUIBB COMPANY-12539466

PATIENT
  Age: 79 Year
  Sex: Female
  Weight: 69 kg

DRUGS (7)
  1. COUMADIN [Suspect]
     Indication: MYOCARDIAL INFARCTION
     Dosage: 3MG AND 4MG ALTERNATING DAILY
     Route: 048
     Dates: start: 20031001
  2. ALTACE [Concomitant]
  3. LOPRESSOR [Concomitant]
  4. ZOCOR [Concomitant]
  5. PLAVIX [Concomitant]
  6. DITROPAN XL [Concomitant]
  7. FOSAMAX [Concomitant]

REACTIONS (2)
  - EPISTAXIS [None]
  - INTERNATIONAL NORMALISED RATIO INCREASED [None]
